FAERS Safety Report 19126338 (Version 1)
Quarter: 2021Q2

REPORT INFORMATION
  Report Type: Spontaneous
  Country: US (occurrence: US)
  Receive Date: 20210413
  Receipt Date: 20210413
  Transmission Date: 20210717
  Serious: Yes (Hospitalization)
  Sender: FDA-Public Use
  Company Number: None

PATIENT
  Age: 41 Year
  Sex: Female
  Weight: 61.23 kg

DRUGS (1)
  1. MIRENA [Suspect]
     Active Substance: LEVONORGESTREL
     Dates: start: 20180201, end: 20180421

REACTIONS (4)
  - Fallopian tube perforation [None]
  - Ectopic pregnancy [None]
  - Pregnancy with contraceptive device [None]
  - Complication associated with device [None]

NARRATIVE: CASE EVENT DATE: 20180421
